FAERS Safety Report 10556905 (Version 1)
Quarter: 2014Q4

REPORT INFORMATION
  Report Type: Report from Study
  Country: SE (occurrence: SE)
  Receive Date: 20141031
  Receipt Date: 20141031
  Transmission Date: 20150529
  Serious: Yes (Life-Threatening, Hospitalization)
  Sender: FDA-Public Use
  Company Number: SE-SA-2014SA149331

PATIENT
  Age: 69 Year
  Sex: Male

DRUGS (11)
  1. PREDNISOLONE. [Suspect]
     Active Substance: PREDNISOLONE
     Indication: PROSTATE CANCER
     Route: 048
  2. CANDESARTAN [Concomitant]
     Active Substance: CANDESARTAN
     Route: 065
  3. CABAZITAXEL [Suspect]
     Active Substance: CABAZITAXEL
     Indication: PROSTATE CANCER
     Route: 042
     Dates: start: 20141009, end: 20141009
  4. PLAVIX [Concomitant]
     Active Substance: CLOPIDOGREL BISULFATE
     Route: 065
  5. ALLOPURINOL. [Concomitant]
     Active Substance: ALLOPURINOL
     Route: 065
  6. LASIX-R [Concomitant]
     Active Substance: FUROSEMIDE\RESERPINE
     Route: 065
  7. NOVOMIX [Concomitant]
     Active Substance: INSULIN ASPART
     Route: 065
  8. CITODON [Concomitant]
     Active Substance: ACETAMINOPHEN\CODEINE PHOSPHATE
     Route: 065
  9. BISOPROLOL [Concomitant]
     Active Substance: BISOPROLOL
     Route: 065
  10. SIMVASTATIN. [Concomitant]
     Active Substance: SIMVASTATIN
     Route: 065
  11. TROMBYL [Concomitant]
     Active Substance: ASPIRIN
     Route: 065

REACTIONS (2)
  - Myocardial infarction [Unknown]
  - Duodenal ulcer [Unknown]

NARRATIVE: CASE EVENT DATE: 20141025
